FAERS Safety Report 13522395 (Version 5)
Quarter: 2017Q3

REPORT INFORMATION
  Report Type: Report from Study
  Country: IE (occurrence: IE)
  Receive Date: 20170508
  Receipt Date: 20170926
  Transmission Date: 20171127
  Serious: Yes (Other)
  Sender: FDA-Public Use
  Company Number: IE-JNJFOC-20170406651

PATIENT
  Age: 66 Year
  Sex: Female
  Weight: 78 kg

DRUGS (25)
  1. FOLIC ACID. [Concomitant]
     Active Substance: FOLIC ACID
     Route: 065
  2. CALCICHEW D3 FORTE [Concomitant]
     Active Substance: CALCIUM\CHOLECALCIFEROL
     Dosage: 2 TO BE TAKEN TWICE DAILY
     Route: 065
  3. GERAX [Concomitant]
     Route: 065
  4. VENTOLIN [Concomitant]
     Active Substance: ALBUTEROL SULFATE
     Dosage: TWO PUFFS TO BE INHALED, FOUR TIMES DAILY, AS REQUIRED
     Route: 055
  5. PREDNISOLONE. [Concomitant]
     Active Substance: PREDNISOLONE
     Route: 065
  6. DELTACORTRIL [Concomitant]
     Active Substance: PREDNISOLONE
     Route: 065
  7. LOSEC [Concomitant]
     Active Substance: OMEPRAZOLE
     Route: 065
  8. VITAMIN D3 [Concomitant]
     Active Substance: CHOLECALCIFEROL
     Route: 065
  9. DALMANE [Concomitant]
     Active Substance: FLURAZEPAM HYDROCHLORIDE
     Route: 065
  10. NITROLINGUAL [Concomitant]
     Active Substance: NITROGLYCERIN
     Route: 065
  11. MOTILIUM [Concomitant]
     Active Substance: DOMPERIDONE
     Route: 065
  12. GLUCOPHAGE [Concomitant]
     Active Substance: METFORMIN HYDROCHLORIDE
     Route: 065
  13. FLIXOTIDE [Concomitant]
     Active Substance: FLUTICASONE PROPIONATE
     Route: 065
  14. COMBIVENT [Concomitant]
     Active Substance: ALBUTEROL SULFATE\IPRATROPIUM BROMIDE
     Dosage: 500 MCG   2.5MG SOLUTION. AS REQUIRED 4 TIMES IN A DAY.
     Route: 065
  15. XYZAL [Concomitant]
     Active Substance: LEVOCETIRIZINE DIHYDROCHLORIDE
     Route: 065
  16. ASPIRIN. [Concomitant]
     Active Substance: ASPIRIN
     Route: 065
  17. LUSTRAL [Concomitant]
     Active Substance: SERTRALINE HYDROCHLORIDE
     Route: 065
  18. AMITRIPTYLINE [Concomitant]
     Active Substance: AMITRIPTYLINE
     Dosage: TWO AT NIGHT
     Route: 065
  19. DELTACORTRIL [Concomitant]
     Active Substance: PREDNISOLONE
     Route: 065
  20. FUROSEMIDE. [Concomitant]
     Active Substance: FUROSEMIDE
     Route: 065
  21. PARALIEF [Concomitant]
     Dosage: TWO TO BE TAKEN THREE TIMES IN A DAY
     Route: 065
  22. STELARA [Suspect]
     Active Substance: USTEKINUMAB
     Indication: TEMPORAL ARTERITIS
     Route: 058
     Dates: start: 20170329
  23. LIPITOR [Concomitant]
     Active Substance: ATORVASTATIN CALCIUM
     Route: 065
  24. XANAX [Concomitant]
     Active Substance: ALPRAZOLAM
     Route: 065
  25. TEVANATE [Concomitant]
     Active Substance: ALENDRONIC ACID
     Route: 065

REACTIONS (4)
  - Off label use [Unknown]
  - Product use in unapproved indication [Unknown]
  - Respiratory tract infection [Recovered/Resolved]
  - Confusional state [Recovered/Resolved]

NARRATIVE: CASE EVENT DATE: 20170404
